FAERS Safety Report 9658935 (Version 2)
Quarter: 2013Q4

REPORT INFORMATION
  Report Type: Report from Study
  Country: FR (occurrence: FR)
  Receive Date: 20131031
  Receipt Date: 20131119
  Transmission Date: 20140711
  Serious: Yes (Death)
  Sender: FDA-Public Use
  Company Number: FR-ROCHE-1297243

PATIENT
  Sex: Male
  Weight: 80 kg

DRUGS (3)
  1. ZELBORAF [Suspect]
     Indication: MALIGNANT MELANOMA
     Route: 048
     Dates: start: 20130209, end: 201307
  2. ONDANSETRON [Concomitant]
     Route: 048
  3. RENITEC [Concomitant]
     Route: 048

REACTIONS (1)
  - Disease progression [Fatal]
